FAERS Safety Report 8431185-8 (Version None)
Quarter: 2012Q2

REPORT INFORMATION
  Report Type: 
  Country: None (occurrence: None)
  Receive Date: 20120612
  Receipt Date: 20120607
  Transmission Date: 20120825
  Serious: Yes (Other)
  Sender: FDA-Public Use
  Company Number: PHHY2012LB049072

PATIENT
  Age: 72 Year
  Sex: Female

DRUGS (3)
  1. ZOLEDRONOC ACID [Suspect]
     Indication: OSTEOPOROSIS
     Dosage: 5 MG, UNK
     Route: 042
     Dates: start: 20120522
  2. DIAMICRON [Concomitant]
     Dosage: 10 MG, UNK
     Route: 048
  3. VITAMIN D [Concomitant]

REACTIONS (2)
  - FALL [None]
  - CONTUSION [None]
